FAERS Safety Report 7883473-1 (Version None)
Quarter: 2011Q4

REPORT INFORMATION
  Report Type: 
  Country: None (occurrence: None)
  Receive Date: 20111102
  Receipt Date: 20111025
  Transmission Date: 20120403
  Serious: Yes (Hospitalization)
  Sender: FDA-Public Use
  Company Number: US-US-EMD SERONO, INC.-7001662

PATIENT
  Sex: Male
  Weight: 84 kg

DRUGS (13)
  1. LYRICA [Concomitant]
     Indication: PAIN
  2. CLONAZEPAM [Concomitant]
     Indication: INSOMNIA
  3. HYDROCODONE BITARTRATE [Concomitant]
  4. CLONAZEPAM [Concomitant]
     Indication: ANXIETY
  5. CYMBALTA [Concomitant]
  6. WELLBUTRIN [Concomitant]
  7. INSULIN SLIDING SCALE [Concomitant]
  8. ATENOLOL [Concomitant]
     Indication: HYPERTENSION
  9. DIAZEPAM [Concomitant]
  10. REBIF [Suspect]
     Indication: MULTIPLE SCLEROSIS
     Route: 058
     Dates: start: 20071022
  11. GABAPENTIN [Concomitant]
     Dates: end: 20100401
  12. GABAPENTIN [Concomitant]
     Dates: start: 20100401
  13. SIMVASTATIN [Concomitant]
     Indication: BLOOD CHOLESTEROL INCREASED

REACTIONS (6)
  - DEPRESSION [None]
  - PAIN [None]
  - FATIGUE [None]
  - ACCIDENTAL OVERDOSE [None]
  - ANXIETY [None]
  - INSOMNIA [None]
